FAERS Safety Report 8786016 (Version 2)
Quarter: 2012Q4

REPORT INFORMATION
  Report Type: 
  Country: US (occurrence: US)
  Receive Date: 20120914
  Receipt Date: 20121019
  Transmission Date: 20130627
  Serious: Yes (Other)
  Sender: FDA-Public Use
  Company Number: PHEH2012US017774

PATIENT
  Age: 70 Year
  Sex: Female
  Weight: 51.7 kg

DRUGS (2)
  1. RECLAST [Suspect]
     Indication: OSTEOPOROSIS
     Dosage: 5 mg, UNK
     Route: 042
     Dates: start: 20120229
  2. CALCIUM W/VITAMIN D NOS [Concomitant]
     Indication: OSTEOPOROSIS
     Dosage: 1 DF (1200/800 calcium/ vitamin D), BID
     Dates: end: 20120801

REACTIONS (5)
  - Nephrolithiasis [Recovered/Resolved]
  - Weight decreased [Unknown]
  - Balance disorder [Unknown]
  - Dehydration [Unknown]
  - Fatigue [Unknown]
